FAERS Safety Report 8401422-4 (Version None)
Quarter: 2012Q2

REPORT INFORMATION
  Report Type: 
  Country: None (occurrence: None)
  Receive Date: 20120530
  Receipt Date: 20120530
  Transmission Date: 20120825
  Serious: Yes (Life-Threatening)
  Sender: FDA-Public Use
  Company Number: None

PATIENT
  Age: 43 Year
  Sex: Female
  Weight: 86.1834 kg

DRUGS (4)
  1. INFED [Suspect]
     Indication: HAEMOGLOBIN DECREASED
     Dosage: 25 MG, 375 MG, BENADRYL 25 MG WITH 250 CC NS IV DRIP, 400 MG
     Route: 042
     Dates: start: 20120529, end: 20120529
  2. INFED [Suspect]
     Indication: HAEMOGLOBIN DECREASED
     Dosage: 25 MG, 375 MG, BENADRYL 25 MG WITH 250 CC NS IV DRIP, 400 MG
     Route: 042
     Dates: start: 20120515, end: 20120515
  3. ACETAMINOPHEN [Concomitant]
  4. BENADRYL [Concomitant]

REACTIONS (4)
  - ANAPHYLACTIC REACTION [None]
  - HEART RATE INCREASED [None]
  - BACK PAIN [None]
  - BLOOD PRESSURE INCREASED [None]
